FAERS Safety Report 9530761 (Version 1)
Quarter: 2013Q3

REPORT INFORMATION
  Report Type: Spontaneous
  Country: US (occurrence: None)
  Receive Date: 20130916
  Receipt Date: 20130916
  Transmission Date: 20140515
  Serious: Yes (Life-Threatening, Hospitalization)
  Sender: FDA-Public Use
  Company Number: None

PATIENT
  Age: 60 Year
  Sex: Female
  Weight: 51 kg

DRUGS (1)
  1. PACLITAXEL [Suspect]
     Indication: LUNG ADENOCARCINOMA

REACTIONS (10)
  - Respiratory distress [None]
  - Lethargy [None]
  - Respiratory failure [None]
  - Hypersensitivity [None]
  - Atrial fibrillation [None]
  - Depressed level of consciousness [None]
  - Hypotension [None]
  - Lactic acidosis [None]
  - Refusal of treatment by patient [None]
  - Infarction [None]
